FAERS Safety Report 5454316-0 (Version None)
Quarter: 2007Q3

REPORT INFORMATION
  Report Type: 
  Country: None (occurrence: None)
  Receive Date: 20070917
  Receipt Date: 20060820
  Transmission Date: 20080115
  Serious: No
  Sender: FDA-Public Use
  Company Number: US-ASTRAZENECA-2006UW16558

PATIENT
  Age: 55 Year
  Sex: Female
  Weight: 68 kg

DRUGS (14)
  1. SEROQUEL [Suspect]
     Indication: BIPOLAR DISORDER
     Route: 048
  2. ACCUPRIL [Concomitant]
  3. PREMARIN [Concomitant]
  4. LASIX [Concomitant]
  5. POTASSIUM CHLORIDE [Concomitant]
  6. SALAGEN [Concomitant]
  7. OXYCONTIN [Concomitant]
  8. OXYCODONE HCL [Concomitant]
  9. CELEXA [Concomitant]
  10. SOMA [Concomitant]
  11. XANAX [Concomitant]
  12. CONCERTA [Concomitant]
  13. RITALIN [Concomitant]
  14. VESICARE [Concomitant]

REACTIONS (2)
  - ILL-DEFINED DISORDER [None]
  - THINKING ABNORMAL [None]
